FAERS Safety Report 25345663 (Version 1)
Quarter: 2025Q2

REPORT INFORMATION
  Report Type: Spontaneous
  Country: CA (occurrence: CA)
  Receive Date: 20250522
  Receipt Date: 20250522
  Transmission Date: 20250717
  Serious: Yes (Hospitalization)
  Sender: AUROBINDO
  Company Number: CA-AUROBINDO-AUR-APL-2023-073634

PATIENT
  Age: 53 Year
  Sex: Female

DRUGS (2)
  1. MILRINONE LACTATE [Suspect]
     Active Substance: MILRINONE LACTATE
     Indication: Vasospasm
     Route: 042
  2. NIMODIPINE [Suspect]
     Active Substance: NIMODIPINE
     Indication: Delayed ischaemic neurological deficit
     Route: 065

REACTIONS (1)
  - Polyuria [Unknown]
